FAERS Safety Report 17366973 (Version 2)
Quarter: 2020Q2

REPORT INFORMATION
  Report Type: Report from Study
  Country: US (occurrence: US)
  Receive Date: 20200204
  Receipt Date: 20200407
  Transmission Date: 20200713
  Serious: Yes (Hospitalization)
  Sender: FDA-Public Use
  Company Number: US-BAUSCH-BL-2020-003205

PATIENT
  Age: 41 Year
  Sex: Male
  Weight: 93.07 kg

DRUGS (2)
  1. XIFAXAN [Suspect]
     Active Substance: RIFAXIMIN
     Indication: HEPATIC ENCEPHALOPATHY
     Dosage: THERAPY START DATE: APPROXIMATELY 1.5 TO 2 YEARS AGO FROM THE TIME OF REPORT
     Route: 048
  2. LACTULOSE. [Suspect]
     Active Substance: LACTULOSE
     Indication: PRODUCT USED FOR UNKNOWN INDICATION
     Dosage: TAKES IT LIKE 5 DAYS OUT OF 7
     Route: 065

REACTIONS (4)
  - Ammonia increased [Recovering/Resolving]
  - Blood glucose increased [Recovering/Resolving]
  - Confusional state [Recovering/Resolving]
  - Sepsis [Recovering/Resolving]
